FAERS Safety Report 7779514-2 (Version None)
Quarter: 2011Q3

REPORT INFORMATION
  Report Type: 
  Country: None (occurrence: None)
  Receive Date: 20110927
  Receipt Date: 20110917
  Transmission Date: 20111222
  Serious: Yes (Other)
  Sender: FDA-Public Use
  Company Number: VE-PAR PHARMACEUTICAL, INC-2011SCPR003245

PATIENT

DRUGS (3)
  1. KETOCONAZOLE [Suspect]
     Indication: TINEA PEDIS
     Dosage: 200 MG/DAY
     Route: 048
  2. METRONIDAZOLE [Suspect]
     Indication: FLATULENCE
  3. METRONIDAZOLE [Suspect]
     Indication: ABDOMINAL PAIN
     Dosage: UNK, UNKNOWN
     Route: 065

REACTIONS (2)
  - DRUG ERUPTION [None]
  - DRUG HYPERSENSITIVITY [None]
